FAERS Safety Report 9801906 (Version 2)
Quarter: 2014Q1

REPORT INFORMATION
  Report Type: Spontaneous
  Country: US (occurrence: US)
  Receive Date: 20140107
  Receipt Date: 20140107
  Transmission Date: 20141002
  Serious: No
  Sender: FDA-Public Use
  Company Number: US-ALLERGAN-1314299US

PATIENT
  Age: 42 Year
  Sex: Female

DRUGS (4)
  1. ACZONE [Suspect]
     Indication: RASH
     Dosage: UNK, QAM
     Route: 061
     Dates: start: 201305
  2. DUAC [Concomitant]
     Indication: RASH
     Dosage: UNK UNK, QAM
     Route: 061
     Dates: start: 201305
  3. PANOXYL [Concomitant]
     Indication: RASH
     Dosage: UNK
     Route: 061
     Dates: start: 201305
  4. RETIN-A [Concomitant]
     Indication: RASH
     Dosage: UNK UNK, QHS
     Route: 061
     Dates: start: 201305

REACTIONS (4)
  - Off label use [Unknown]
  - Wrong technique in drug usage process [Unknown]
  - Therapeutic response decreased [Unknown]
  - Application site discolouration [Recovering/Resolving]
